FAERS Safety Report 10396661 (Version 1)
Quarter: 2014Q1

REPORT INFORMATION
  Report Type: Spontaneous
  Country: US (occurrence: None)
  Receive Date: 20130606
  Receipt Date: 20130606
  Transmission Date: 20141002
  Serious: No
  Sender: FDA-Public Use
  Company Number: 2013BAX008040

PATIENT
  Age: 71 Year
  Sex: Male
  Weight: 79 kg

DRUGS (5)
  1. GAMMAGARD [Suspect]
     Indication: IMMUNODEFICIENCY COMMON VARIABLE
     Dosage: 1.4286 GM (10 GM,1 IN 1 WK)
     Route: 058
     Dates: start: 20130122
  2. ALLEGRA (FEXOFENADINE HYDROCHLORIDE) [Concomitant]
  3. PRILOSEC (OMEPRAZOLE) [Concomitant]
  4. TYLENOL (PARACETAMOL) [Concomitant]
  5. CENTRUM (VITAMINS NOS, MINERALS NOS) [Concomitant]

REACTIONS (1)
  - Asthenia [None]
